FAERS Safety Report 8594682-0 (Version None)
Quarter: 2012Q3

REPORT INFORMATION
  Report Type: 
  Country: None (occurrence: None)
  Receive Date: 20120815
  Receipt Date: 20120809
  Transmission Date: 20120928
  Serious: No
  Sender: FDA-Public Use
  Company Number: US-PFIZER INC-2012195065

PATIENT
  Sex: Female

DRUGS (1)
  1. ESTRING [Suspect]
     Dosage: UNK
     Route: 067

REACTIONS (2)
  - DIZZINESS [None]
  - FEELING ABNORMAL [None]
